FAERS Safety Report 5755697-0 (Version None)
Quarter: 2008Q2

REPORT INFORMATION
  Report Type: 
  Country: None (occurrence: None)
  Receive Date: 20080530
  Receipt Date: 20080530
  Transmission Date: 20081010
  Serious: Yes (Hospitalization)
  Sender: FDA-Public Use
  Company Number: None

PATIENT
  Age: 39 Year
  Sex: Male
  Weight: 115.2 kg

DRUGS (1)
  1. AMOXICILLIN [Suspect]
     Indication: TONSILLITIS STREPTOCOCCAL
     Dosage: 250 MG TID PO
     Route: 048
     Dates: start: 20080429, end: 20080503

REACTIONS (3)
  - PRURITUS [None]
  - RASH [None]
  - URTICARIA [None]
